FAERS Safety Report 20927163 (Version 2)
Quarter: 2024Q3

REPORT INFORMATION
  Report Type: Spontaneous
  Country: US (occurrence: US)
  Receive Date: 20220607
  Receipt Date: 20240923
  Transmission Date: 20241016
  Serious: No
  Sender: ELI LILLY AND CO
  Company Number: US-ELI_LILLY_AND_COMPANY-US202206001722

PATIENT
  Age: 68 Year
  Sex: Female

DRUGS (1)
  1. TALTZ [Suspect]
     Active Substance: IXEKIZUMAB
     Indication: Product used for unknown indication
     Dosage: 80 MG, MONTHLY (1/M)
     Route: 058

REACTIONS (4)
  - Arthralgia [Not Recovered/Not Resolved]
  - Injection site pain [Recovered/Resolved]
  - Accidental underdose [Recovered/Resolved]
  - Wrong technique in product usage process [Unknown]
